FAERS Safety Report 6381884-7 (Version None)
Quarter: 2009Q3

REPORT INFORMATION
  Report Type: 
  Country: None (occurrence: None)
  Receive Date: 20090930
  Receipt Date: 20090924
  Transmission Date: 20100115
  Serious: Yes (Other)
  Sender: FDA-Public Use
  Company Number: US-JNJFOC-20090907596

PATIENT
  Age: 33 Year
  Sex: Female

DRUGS (6)
  1. TOPIRAMATE [Suspect]
     Indication: MIGRAINE PROPHYLAXIS
     Route: 048
  2. IMIPRAMINE [Concomitant]
     Route: 065
  3. LOVAZA [Concomitant]
     Route: 065
  4. ACETAMINOPHEN AND HYDROCODONE BITARTRATE [Concomitant]
     Route: 065
  5. LOESTRIN 1.5/30 [Concomitant]
     Indication: CONTRACEPTION
     Route: 065
  6. LORAZEPAM [Concomitant]
     Route: 065

REACTIONS (2)
  - HYPERTENSION [None]
  - TACHYCARDIA [None]
